FAERS Safety Report 15852146 (Version 1)
Quarter: 2019Q1

REPORT INFORMATION
  Report Type: Spontaneous
  Country: GB (occurrence: GB)
  Receive Date: 20190122
  Receipt Date: 20190122
  Transmission Date: 20190417
  Serious: Yes (Other)
  Sender: FDA-Public Use
  Company Number: GB-AUROBINDO-AUR-APL-2019-001273

PATIENT
  Age: 40 Year
  Sex: Female
  Weight: 57.15 kg

DRUGS (2)
  1. CITALOPRAM [Concomitant]
     Active Substance: CITALOPRAM HYDROBROMIDE
     Indication: PRODUCT USED FOR UNKNOWN INDICATION
     Dosage: 20 MILLIGRAM, STILL BEING TAKEN
     Route: 065
  2. MODAFINIL. [Suspect]
     Active Substance: MODAFINIL
     Indication: HYPERSOMNIA
     Dosage: UNK
     Route: 048
     Dates: start: 2012, end: 2013

REACTIONS (2)
  - Reaction to food additive [Not Recovered/Not Resolved]
  - Defaecation urgency [Not Recovered/Not Resolved]

NARRATIVE: CASE EVENT DATE: 2012
